FAERS Safety Report 4349374-0 (Version None)
Quarter: 2004Q2

REPORT INFORMATION
  Report Type: 
  Country: None (occurrence: None)
  Receive Date: 20040428
  Receipt Date: 20020802
  Transmission Date: 20050107
  Serious: Yes (Hospitalization)
  Sender: FDA-Public Use
  Company Number: US-BRISTOL-MYERS SQUIBB COMPANY-11977865

PATIENT
  Age: 53 Year
  Sex: Male

DRUGS (7)
  1. BMS224818 [Concomitant]
     Dosage: -OPEN-LABEL NOT REALLOCATED
     Route: 042
     Dates: start: 20020505, end: 20020801
  2. MYCOPHENOLATE MOFETIL [Suspect]
     Dates: start: 20020505
  3. PREDNISOLONE [Suspect]
     Dates: start: 20020505
  4. COTRIM [Concomitant]
     Dates: start: 20020505
  5. RANITIDINE [Concomitant]
     Dates: start: 20020505
  6. NIFEDIPINE [Concomitant]
     Dates: start: 20020508
  7. GANCICLOVIR [Concomitant]
     Dates: start: 20020719

REACTIONS (1)
  - KIDNEY TRANSPLANT REJECTION [None]
